FAERS Safety Report 14715475 (Version 1)
Quarter: 2018Q2

REPORT INFORMATION
  Report Type: Report from Study
  Country: None (occurrence: AT)
  Receive Date: 20180404
  Receipt Date: 20180404
  Transmission Date: 20180711
  Serious: Yes (Death, Hospitalization)
  Sender: FDA-Public Use
  Company Number: AT-ABBVIE-18K-009-2249856-00

PATIENT
  Age: 73 Year
  Sex: Female

DRUGS (1)
  1. DUODOPA [Suspect]
     Active Substance: CARBIDOPA\LEVODOPA
     Indication: PARKINSON^S DISEASE
     Dosage: DAILY PUMP THERAPY, 16 H THERAPY:?MD: 8 ML?CR DAYTIME: 5.5 ML/H?ED: 3 ML
     Route: 050
     Dates: start: 20180201

REACTIONS (2)
  - Pneumonia [Fatal]
  - On and off phenomenon [Recovering/Resolving]

NARRATIVE: CASE EVENT DATE: 2018
